FAERS Safety Report 11415314 (Version 2)
Quarter: 2015Q4

REPORT INFORMATION
  Report Type: Report from Study
  Country: UY (occurrence: UY)
  Receive Date: 20150825
  Receipt Date: 20151019
  Transmission Date: 20160304
  Serious: Yes (Other)
  Sender: FDA-Public Use
  Company Number: UY-ROCHE-1611828

PATIENT
  Sex: Female

DRUGS (1)
  1. XELODA [Suspect]
     Active Substance: CAPECITABINE
     Indication: COLON CANCER
     Dosage: DAILY
     Route: 048
     Dates: start: 20150715

REACTIONS (7)
  - Vomiting [Recovered/Resolved]
  - Blood pressure decreased [Recovered/Resolved]
  - Nausea [Recovered/Resolved]
  - Salivary hypersecretion [Recovered/Resolved]
  - Palmar-plantar erythrodysaesthesia syndrome [Recovering/Resolving]
  - Dry skin [Recovering/Resolving]
  - Weight decreased [Recovered/Resolved]
